FAERS Safety Report 5058320-6 (Version None)
Quarter: 2006Q2

REPORT INFORMATION
  Report Type: 
  Country: None (occurrence: None)
  Receive Date: 20060628
  Receipt Date: 20060117
  Transmission Date: 20061013
  Serious: Yes (Hospitalization)
  Sender: FDA-Public Use
  Company Number: PHEH2006US01023

PATIENT
  Age: 66 Year
  Sex: Female

DRUGS (1)
  1. SIMULECT [Suspect]
     Dosage: ONCE/SINGLE, INFUSION
     Dates: start: 20050714, end: 20050714

REACTIONS (2)
  - NERVOUS SYSTEM DISORDER [None]
  - NOCARDIOSIS [None]
